FAERS Safety Report 10204208 (Version 1)
Quarter: 2014Q2

REPORT INFORMATION
  Report Type: Report from Study
  Country: GB (occurrence: GB)
  Receive Date: 20140529
  Receipt Date: 20140529
  Transmission Date: 20141212
  Serious: Yes (Other)
  Sender: FDA-Public Use
  Company Number: GB-ABBVIE-14P-167-1240281-00

PATIENT
  Age: 63 Year
  Sex: Female

DRUGS (2)
  1. HUMIRA [Suspect]
     Indication: PRODUCT USED FOR UNKNOWN INDICATION
     Dates: start: 201310
  2. NEW HEART MEDICATION [Concomitant]
     Indication: CARDIAC DISORDER

REACTIONS (4)
  - Abdominal distension [Unknown]
  - Unevaluable event [Unknown]
  - Diarrhoea [Unknown]
  - Nausea [Unknown]
